FAERS Safety Report 12359251 (Version 1)
Quarter: 2016Q2

REPORT INFORMATION
  Report Type: Spontaneous
  Country: US (occurrence: None)
  Receive Date: 20160511
  Receipt Date: 20160511
  Transmission Date: 20160815
  Serious: Yes (Hospitalization)
  Sender: FDA-Public Use
  Company Number: None

PATIENT
  Age: 52 Year
  Sex: Female
  Weight: 76.4 kg

DRUGS (2)
  1. CYCLOPHOSPHAMIDE. [Suspect]
     Active Substance: CYCLOPHOSPHAMIDE
     Dates: end: 20160415
  2. DOXORUBICIN HYDROCHLORIDE. [Suspect]
     Active Substance: DOXORUBICIN HYDROCHLORIDE
     Dates: end: 20160415

REACTIONS (11)
  - Decreased appetite [None]
  - Abdominal pain [None]
  - Failure to thrive [None]
  - Blood potassium decreased [None]
  - Oesophagitis [None]
  - Tongue ulceration [None]
  - Mucosal infection [None]
  - Neutrophil count decreased [None]
  - Nausea [None]
  - Gastrooesophageal reflux disease [None]
  - Dysphagia [None]

NARRATIVE: CASE EVENT DATE: 20160420
